FAERS Safety Report 14310614 (Version 1)
Quarter: 2017Q4

REPORT INFORMATION
  Report Type: Spontaneous
  Country: GB (occurrence: GB)
  Receive Date: 20171220
  Receipt Date: 20171220
  Transmission Date: 20180321
  Serious: Yes (Hospitalization)
  Sender: FDA-Public Use
  Company Number: GB-MYLANLABS-2017M1079671

PATIENT
  Age: 76 Year
  Sex: Male
  Weight: 67.9 kg

DRUGS (5)
  1. FOLIC ACID. [Concomitant]
     Active Substance: FOLIC ACID
     Indication: PRODUCT USED FOR UNKNOWN INDICATION
  2. HYDROXOCOBALAMIN [Concomitant]
     Active Substance: HYDROXOCOBALAMIN
     Indication: PRODUCT USED FOR UNKNOWN INDICATION
  3. FLUOXETINE [Suspect]
     Active Substance: FLUOXETINE HYDROCHLORIDE
     Indication: ANXIETY
     Dosage: 20 MG, UNK
     Route: 048
     Dates: start: 20171023, end: 20171113
  4. FLUOXETINE [Suspect]
     Active Substance: FLUOXETINE HYDROCHLORIDE
     Indication: DEPRESSION
     Dosage: 40 MG, UNK
     Route: 048
     Dates: start: 20171113
  5. AMITRIPTYLINE [Concomitant]
     Active Substance: AMITRIPTYLINE
     Indication: PRODUCT USED FOR UNKNOWN INDICATION

REACTIONS (8)
  - Malaise [Recovering/Resolving]
  - Insomnia [Recovering/Resolving]
  - Amnesia [Recovering/Resolving]
  - Abnormal loss of weight [Recovering/Resolving]
  - Decreased appetite [Recovering/Resolving]
  - Dizziness [Recovering/Resolving]
  - Dysuria [Recovering/Resolving]
  - Urine output increased [Recovering/Resolving]

NARRATIVE: CASE EVENT DATE: 20171112
